FAERS Safety Report 19190045 (Version 1)
Quarter: 2021Q2

REPORT INFORMATION
  Report Type: Spontaneous
  Country: US (occurrence: US)
  Receive Date: 20210428
  Receipt Date: 20210428
  Transmission Date: 20210717
  Serious: Yes (Other)
  Sender: FDA-Public Use
  Company Number: US-GLAXOSMITHKLINE-US2021AMR091184

PATIENT
  Sex: Female

DRUGS (2)
  1. LAMOTRIGINE. [Suspect]
     Active Substance: LAMOTRIGINE
     Indication: PRODUCT USED FOR UNKNOWN INDICATION
     Dosage: 1 DF, BID, 100 MG
     Dates: start: 202002
  2. LAMOTRIGINE. [Suspect]
     Active Substance: LAMOTRIGINE
     Dosage: 1 DF, BID, 200 MG

REACTIONS (5)
  - Feeling abnormal [Unknown]
  - Vision blurred [Unknown]
  - Condition aggravated [Unknown]
  - Fall [Unknown]
  - Blindness [Recovered/Resolved]
